FAERS Safety Report 6108305-3 (Version None)
Quarter: 2009Q1

REPORT INFORMATION
  Report Type: 
  Country: None (occurrence: None)
  Receive Date: 20090309
  Receipt Date: 20090226
  Transmission Date: 20090719
  Serious: Yes (Life-Threatening, Hospitalization)
  Sender: FDA-Public Use
  Company Number: JP-AMGEN-US326390

PATIENT
  Sex: Male
  Weight: 73 kg

DRUGS (9)
  1. ENBREL [Suspect]
     Indication: RHEUMATOID ARTHRITIS
     Route: 058
     Dates: start: 20050101, end: 20070901
  2. PREDONINE [Concomitant]
     Indication: RHEUMATOID ARTHRITIS
     Route: 048
     Dates: end: 20071127
  3. LOXONIN [Concomitant]
     Indication: RHEUMATOID ARTHRITIS
     Route: 048
     Dates: end: 20081127
  4. ASPIRIN [Concomitant]
     Route: 048
     Dates: end: 20071127
  5. CALBLOCK [Concomitant]
     Indication: HYPERTENSION
     Route: 048
     Dates: end: 20071127
  6. ALDOMET [Concomitant]
     Indication: HYPERTENSION
     Route: 048
     Dates: end: 20071127
  7. PROGRAF [Concomitant]
     Indication: RHEUMATOID ARTHRITIS
     Route: 048
     Dates: end: 20071127
  8. MUCOSTA [Concomitant]
     Indication: GASTRITIS
     Route: 048
     Dates: end: 20071127
  9. IFENPRODIL [Concomitant]
     Route: 065
     Dates: end: 20071127

REACTIONS (7)
  - CANDIDIASIS [None]
  - CARDIO-RESPIRATORY ARREST [None]
  - ORGANISING PNEUMONIA [None]
  - PNEUMOCOCCAL SEPSIS [None]
  - PNEUMONIA PNEUMOCOCCAL [None]
  - POSTRESUSCITATION ENCEPHALOPATHY [None]
  - SHOCK [None]
